FAERS Safety Report 25470821 (Version 2)
Quarter: 2025Q3

REPORT INFORMATION
  Report Type: Spontaneous
  Country: GB (occurrence: GB)
  Receive Date: 20250624
  Receipt Date: 20250703
  Transmission Date: 20251021
  Serious: Yes (Other)
  Sender: RANBAXY
  Company Number: GB-SUN PHARMACEUTICAL INDUSTRIES LTD-2025RR-513657

PATIENT
  Age: 71 Year

DRUGS (2)
  1. GEMCITABINE [Suspect]
     Active Substance: GEMCITABINE
     Indication: Product used for unknown indication
     Route: 065
  2. DOXORUBICIN [Suspect]
     Active Substance: DOXORUBICIN
     Indication: Product used for unknown indication
     Route: 065

REACTIONS (9)
  - Hepatic function abnormal [Not Recovered/Not Resolved]
  - Cardiotoxicity [Unknown]
  - Metastasis [Unknown]
  - Diastolic dysfunction [Unknown]
  - Oedema peripheral [Not Recovered/Not Resolved]
  - Fluid retention [Unknown]
  - Product administration error [Unknown]
  - Blood osmolarity decreased [Unknown]
  - Mobility decreased [Unknown]

NARRATIVE: CASE EVENT DATE: 20250301
